APPROVED DRUG PRODUCT: BRIMONIDINE TARTRATE
Active Ingredient: BRIMONIDINE TARTRATE
Strength: EQ 0.33% BASE
Dosage Form/Route: GEL;TOPICAL
Application: A209158 | Product #001 | TE Code: AB
Applicant: PADAGIS ISRAEL PHARMACEUTICALS LTD
Approved: Sep 23, 2021 | RLD: No | RS: No | Type: RX